FAERS Safety Report 6596926-3 (Version None)
Quarter: 2010Q1

REPORT INFORMATION
  Report Type: 
  Country: None (occurrence: None)
  Receive Date: 20100222
  Receipt Date: 20100222
  Transmission Date: 20100710
  Serious: Yes (Other)
  Sender: FDA-Public Use
  Company Number: None

PATIENT
  Age: 29 Year
  Sex: Female
  Weight: 70.3075 kg

DRUGS (2)
  1. PRISTIQ [Suspect]
     Indication: ANXIETY
     Dosage: 50 MG 1 PER DAY PO
     Route: 048
     Dates: start: 20080201, end: 20100201
  2. PRISTIQ [Suspect]
     Indication: DEPRESSION
     Dosage: 50 MG 1 PER DAY PO
     Route: 048
     Dates: start: 20080201, end: 20100201

REACTIONS (6)
  - CONFUSIONAL STATE [None]
  - DRUG WITHDRAWAL SYNDROME [None]
  - FATIGUE [None]
  - IRRITABILITY [None]
  - NAUSEA [None]
  - PARAESTHESIA [None]
